FAERS Safety Report 8269637-6 (Version None)
Quarter: 2012Q2

REPORT INFORMATION
  Report Type: 
  Country: None (occurrence: None)
  Receive Date: 20120410
  Receipt Date: 20120402
  Transmission Date: 20120825
  Serious: No
  Sender: FDA-Public Use
  Company Number: US-BIOGENIDEC-2012BI011489

PATIENT
  Age: 27 Year

DRUGS (1)
  1. AVONEX [Suspect]
     Indication: MULTIPLE SCLEROSIS
     Route: 030
     Dates: start: 20120330

REACTIONS (6)
  - FEELING OF BODY TEMPERATURE CHANGE [None]
  - DIZZINESS [None]
  - NAUSEA [None]
  - FATIGUE [None]
  - ASTHENIA [None]
  - CHILLS [None]
